FAERS Safety Report 7743001-8 (Version None)
Quarter: 2011Q3

REPORT INFORMATION
  Report Type: 
  Country: None (occurrence: None)
  Receive Date: 20110912
  Receipt Date: 20110901
  Transmission Date: 20111222
  Serious: Yes (Hospitalization)
  Sender: FDA-Public Use
  Company Number: JP-ROCHE-797879

PATIENT
  Sex: Female
  Weight: 53 kg

DRUGS (6)
  1. HERCEPTIN [Suspect]
     Indication: BREAST CANCER
     Route: 041
     Dates: start: 20101207, end: 20101207
  2. HERCEPTIN [Suspect]
     Route: 041
     Dates: start: 20101221, end: 20101221
  3. HERCEPTIN [Suspect]
     Route: 041
     Dates: start: 20110105
  4. TAMOXIFEN CITRATE [Concomitant]
     Route: 048
     Dates: start: 20110404, end: 20110815
  5. LACTOMIN [Concomitant]
     Route: 050
     Dates: start: 20110516, end: 20110815
  6. MAZULENE S [Concomitant]
     Route: 048
     Dates: start: 20110516, end: 20110815

REACTIONS (6)
  - VERTIGO POSITIONAL [None]
  - HYPOPHAGIA [None]
  - GASTROINTESTINAL DISORDER [None]
  - FEELING COLD [None]
  - GAIT DISTURBANCE [None]
  - DIZZINESS [None]
